FAERS Safety Report 7935853-3 (Version None)
Quarter: 2011Q4

REPORT INFORMATION
  Report Type: 
  Country: None (occurrence: None)
  Receive Date: 20111121
  Receipt Date: 20111110
  Transmission Date: 20120403
  Serious: Yes (Other)
  Sender: FDA-Public Use
  Company Number: 2011AP002222

PATIENT
  Age: 47 Year
  Sex: Female

DRUGS (2)
  1. PENICILLIN [Concomitant]
  2. CLARITHROMYCIN [Suspect]
     Indication: PNEUMONIA
     Dosage: 500 MG;PO;BID
     Route: 048
     Dates: start: 20110830, end: 20110909

REACTIONS (2)
  - ACTIVITIES OF DAILY LIVING IMPAIRED [None]
  - HYPOMANIA [None]
